FAERS Safety Report 23694688 (Version 1)
Quarter: 2024Q2

REPORT INFORMATION
  Report Type: Spontaneous
  Country: US (occurrence: US)
  Receive Date: 20240402
  Receipt Date: 20240402
  Transmission Date: 20240716
  Serious: Yes (Other)
  Sender: FDA-Public Use
  Company Number: US-ABBVIE-5694398

PATIENT
  Sex: Female

DRUGS (3)
  1. LATISSE [Suspect]
     Active Substance: BIMATOPROST
     Indication: Madarosis
     Dosage: FORM STRENGTH WAS 0.3MG/ML
     Route: 061
     Dates: end: 20240321
  2. LATISSE [Suspect]
     Active Substance: BIMATOPROST
     Indication: Growth of eyelashes
  3. DOXYCYCLINE [Suspect]
     Active Substance: DOXYCYCLINE
     Indication: Product used for unknown indication
     Route: 065

REACTIONS (16)
  - Spinal operation [Unknown]
  - Accident [Recovering/Resolving]
  - Madarosis [Unknown]
  - Trigeminal neuralgia [Unknown]
  - Eye pain [Unknown]
  - Head injury [Unknown]
  - Somnolence [Unknown]
  - Fatigue [Unknown]
  - Headache [Unknown]
  - Periorbital swelling [Unknown]
  - Lacrimation increased [Unknown]
  - Ocular discomfort [Unknown]
  - Pruritus [Unknown]
  - Dry eye [Unknown]
  - Blindness [Unknown]
  - Impaired driving ability [Unknown]
